FAERS Safety Report 8381525 (Version 3)
Quarter: 2013Q2

REPORT INFORMATION
  Report Type: Spontaneous
  Country: JP (occurrence: JP)
  Receive Date: 20120131
  Receipt Date: 20130611
  Transmission Date: 20140414
  Serious: Yes (Other)
  Sender: FDA-Public Use
  Company Number: JP-ELI_LILLY_AND_COMPANY-JP201112003996

PATIENT
  Age: 75 Year
  Sex: Female

DRUGS (3)
  1. FORTEO [Suspect]
     Dosage: UNK
     Route: 058
     Dates: start: 201112, end: 201201
  2. FORTEO [Suspect]
     Route: 058
  3. FORTEO [Suspect]
     Route: 058

REACTIONS (7)
  - Rib fracture [Unknown]
  - Spinal X-ray abnormal [Unknown]
  - Metastasis [Unknown]
  - Injection site erythema [Unknown]
  - Malaise [Unknown]
  - Diarrhoea [Unknown]
  - Bone density decreased [Unknown]
